FAERS Safety Report 14805736 (Version 1)
Quarter: 2018Q2

REPORT INFORMATION
  Report Type: Spontaneous
  Country: BR (occurrence: BR)
  Receive Date: 20180425
  Receipt Date: 20180425
  Transmission Date: 20180711
  Serious: Yes (Other)
  Sender: FDA-Public Use
  Company Number: BR-SA-2018SA113490

PATIENT
  Age: 55 Year
  Sex: Female

DRUGS (15)
  1. DOCETAXEL. [Suspect]
     Active Substance: DOCETAXEL
     Indication: METASTATIC GASTRIC CANCER
     Dosage: DOSE:30 UNIT(S)
     Route: 042
  2. DOCETAXEL. [Suspect]
     Active Substance: DOCETAXEL
     Indication: ADENOCARCINOMA GASTRIC
     Dosage: 30MLM2 2 HOURS?ON DAY 1. CYCLES WERE REPEATED EVERY 21 DAYS. DOSE:30 UNIT(S)
     Route: 033
  3. CISPLATIN. [Suspect]
     Active Substance: CISPLATIN
     Indication: ADENOCARCINOMA GASTRIC
     Dosage: ON DAY 1. CYCLES WERE REPEATED EVERY 21 DAYS, 30ML/M2
     Route: 033
  4. CISPLATIN. [Suspect]
     Active Substance: CISPLATIN
     Indication: ADENOCARCINOMA GASTRIC
     Dosage: 30ML/M2,ON DAY 8. CYCLES WERE REPEATED EVERY 21 DAYS.
     Route: 042
  5. DOCETAXEL. [Suspect]
     Active Substance: DOCETAXEL
     Indication: METASTASES TO PERITONEUM
     Dosage: DOSE:30 UNIT(S)
     Route: 042
  6. CAPECITABINE. [Suspect]
     Active Substance: CAPECITABINE
     Indication: ADENOCARCINOMA GASTRIC
     Dosage: TWICE A DAY WAS ADMINISTERED FROM DAY 1 TO DAY 14. CYCLES WERE REPEATED EVERY 21 DAYS.
     Route: 042
  7. DOCETAXEL. [Suspect]
     Active Substance: DOCETAXEL
     Indication: METASTATIC GASTRIC CANCER
     Dosage: 30MLM2 2 HOURS?ON DAY 1. CYCLES WERE REPEATED EVERY 21 DAYS. DOSE:30 UNIT(S)
     Route: 033
  8. CISPLATIN. [Suspect]
     Active Substance: CISPLATIN
     Indication: METASTASES TO PERITONEUM
     Dosage: ON DAY 1. CYCLES WERE REPEATED EVERY 21 DAYS, 30ML/M2
     Route: 033
  9. CISPLATIN. [Suspect]
     Active Substance: CISPLATIN
     Indication: METASTATIC GASTRIC CANCER
     Dosage: 30ML/M2,ON DAY 8. CYCLES WERE REPEATED EVERY 21 DAYS.
     Route: 042
  10. DOCETAXEL. [Suspect]
     Active Substance: DOCETAXEL
     Indication: ADENOCARCINOMA GASTRIC
     Dosage: DOSE:30 UNIT(S)
     Route: 042
  11. CAPECITABINE. [Suspect]
     Active Substance: CAPECITABINE
     Indication: METASTATIC GASTRIC CANCER
     Dosage: TWICE A DAY WAS ADMINISTERED FROM DAY 1 TO DAY 14. CYCLES WERE REPEATED EVERY 21 DAYS.
     Route: 042
  12. CISPLATIN. [Suspect]
     Active Substance: CISPLATIN
     Indication: METASTATIC GASTRIC CANCER
     Dosage: ON DAY 1. CYCLES WERE REPEATED EVERY 21 DAYS, 30ML/M2
     Route: 033
  13. DOCETAXEL. [Suspect]
     Active Substance: DOCETAXEL
     Indication: METASTASES TO PERITONEUM
     Dosage: 30MLM2 2 HOURS?ON DAY 1. CYCLES WERE REPEATED EVERY 21 DAYS. DOSE:30 UNIT(S)
     Route: 033
  14. CAPECITABINE. [Suspect]
     Active Substance: CAPECITABINE
     Indication: METASTASES TO PERITONEUM
     Dosage: TWICE A DAY WAS ADMINISTERED FROM DAY 1 TO DAY 14. CYCLES WERE REPEATED EVERY 21 DAYS.
     Route: 042
  15. CISPLATIN. [Suspect]
     Active Substance: CISPLATIN
     Indication: METASTASES TO PERITONEUM
     Dosage: 30ML/M2,ON DAY 8. CYCLES WERE REPEATED EVERY 21 DAYS.
     Route: 042

REACTIONS (10)
  - Alopecia [Unknown]
  - Neuropathy peripheral [Unknown]
  - Chemical peritonitis [Unknown]
  - Decreased appetite [Unknown]
  - Nausea [Unknown]
  - Upper respiratory tract infection [Unknown]
  - Toxicity to various agents [Unknown]
  - Vomiting [Unknown]
  - Fatigue [Unknown]
  - Myalgia [Unknown]
